FAERS Safety Report 8140434-5 (Version None)
Quarter: 2012Q1

REPORT INFORMATION
  Report Type: 
  Country: None (occurrence: None)
  Receive Date: 20120214
  Receipt Date: 20120214
  Transmission Date: 20120608
  Serious: Yes (Other)
  Sender: FDA-Public Use
  Company Number: None

PATIENT
  Age: 25 Year
  Sex: Female

DRUGS (1)
  1. SENSIPAR [Suspect]
     Dosage: 150MG DAILY PO
     Route: 048
     Dates: start: 20091210, end: 20120208

REACTIONS (4)
  - EATING DISORDER [None]
  - MOOD ALTERED [None]
  - CRYING [None]
  - NAUSEA [None]
